FAERS Safety Report 6580510-1 (Version None)
Quarter: 2010Q1

REPORT INFORMATION
  Report Type: 
  Country: None (occurrence: None)
  Receive Date: 20100212
  Receipt Date: 20100128
  Transmission Date: 20100710
  Serious: Yes (Other)
  Sender: FDA-Public Use
  Company Number: FR-GENENTECH-297959

PATIENT
  Sex: Female
  Weight: 58 kg

DRUGS (7)
  1. XOLAIR [Suspect]
     Indication: ASTHMA
     Dosage: 225 MG, Q2W
     Dates: start: 20060201
  2. XOLAIR [Suspect]
     Dosage: 300 MG, 1/MONTH
  3. XOLAIR [Suspect]
     Dosage: 225 MG, Q2W
     Dates: start: 20080201, end: 20100101
  4. BECLOMETASONE DIPROPIONATE [Concomitant]
     Indication: DRUG USE FOR UNKNOWN INDICATION
  5. FORMOTEROL FUMARATE [Concomitant]
     Indication: DRUG USE FOR UNKNOWN INDICATION
  6. SINGULAIR [Concomitant]
     Indication: DRUG USE FOR UNKNOWN INDICATION
  7. HYDROCORTISONE [Concomitant]
     Indication: DRUG USE FOR UNKNOWN INDICATION

REACTIONS (10)
  - ABORTION INDUCED [None]
  - ARTHRALGIA [None]
  - ASTHMA [None]
  - DERMAL CYST [None]
  - DIARRHOEA [None]
  - DRUG EXPOSURE DURING PREGNANCY [None]
  - DYSPEPSIA [None]
  - HEADACHE [None]
  - NAUSEA [None]
  - WEIGHT INCREASED [None]
